FAERS Safety Report 4588350-X (Version None)
Quarter: 2005Q1

REPORT INFORMATION
  Report Type: 
  Country: None (occurrence: None)
  Receive Date: 20050222
  Receipt Date: 20050208
  Transmission Date: 20050727
  Serious: Yes (Death, Life-Threatening, Other)
  Sender: FDA-Public Use
  Company Number: JP-JNJFOC-20050200001

PATIENT
  Age: 68 Year
  Sex: Female

DRUGS (2)
  1. LEUSTATIN [Suspect]
     Route: 041
  2. LEUSTATIN [Suspect]
     Indication: MANTLE CELL LYMPHOMA
     Route: 041

REACTIONS (2)
  - DEATH [None]
  - RENAL FAILURE ACUTE [None]
